FAERS Safety Report 24326539 (Version 1)
Quarter: 2024Q3

REPORT INFORMATION
  Report Type: Report from Study
  Country: CA (occurrence: CA)
  Receive Date: 20240917
  Receipt Date: 20240917
  Transmission Date: 20241017
  Serious: Yes (Other)
  Sender: TAKEDA
  Company Number: CA-TAKEDA-2024TUS090504

PATIENT
  Sex: Female

DRUGS (2)
  1. VEDOLIZUMAB [Suspect]
     Active Substance: VEDOLIZUMAB
     Indication: Crohn^s disease
     Dosage: 300 MILLIGRAM
     Route: 042
     Dates: start: 20201111
  2. Reactine [Concomitant]
     Dosage: 10 MILLIGRAM
     Route: 048
     Dates: start: 20230416

REACTIONS (2)
  - Urine abnormality [Recovered/Resolved]
  - Chromaturia [Recovered/Resolved]
